FAERS Safety Report 18955053 (Version 1)
Quarter: 2021Q1

REPORT INFORMATION
  Report Type: Spontaneous
  Country: GB (occurrence: GB)
  Receive Date: 20210301
  Receipt Date: 20210301
  Transmission Date: 20210420
  Serious: Yes (Other)
  Sender: FDA-Public Use
  Company Number: GB-TEVA-2021-GB-1882066

PATIENT
  Age: 60 Year
  Sex: Male
  Weight: 116 kg

DRUGS (18)
  1. TERBINAFINE. [Concomitant]
     Active Substance: TERBINAFINE
     Indication: FUNGAL INFECTION
     Dosage: 1 DOSAGE FORMS DAILY;
     Dates: start: 20210127, end: 20210210
  2. LANSOPRAZOLE. [Concomitant]
     Active Substance: LANSOPRAZOLE
     Dosage: 1 DOSAGE FORMS DAILY; EACH MORNING
     Dates: start: 20201103
  3. PRAVASTATIN. [Concomitant]
     Active Substance: PRAVASTATIN
     Dosage: 1 DOSAGE FORMS DAILY; AT NIGHT
     Dates: start: 20201103
  4. TRIMETHOPRIM. [Concomitant]
     Active Substance: TRIMETHOPRIM
     Dosage: 2 DOSAGE FORMS DAILY; TO TREAT URINE ...
     Dates: start: 20201118, end: 20201125
  5. ISOTARD XL [Concomitant]
     Dosage: 2 DOSAGE FORMS DAILY;
     Dates: start: 20201103
  6. NICORANDIL [Concomitant]
     Active Substance: NICORANDIL
     Dosage: 60 MILLIGRAM DAILY;
     Dates: start: 20201103
  7. AMLODIPINE [Suspect]
     Active Substance: AMLODIPINE BESYLATE
     Dosage: 10 MG
     Dates: start: 202011
  8. ASPIRIN. [Concomitant]
     Active Substance: ASPIRIN
     Dosage: 1 DOSAGE FORMS DAILY;
     Dates: start: 20201103
  9. GLYCERYL TRINITRATE [Concomitant]
     Active Substance: NITROGLYCERIN
     Dosage: 1 DF
     Dates: start: 20201103
  10. RANOLAZINE. [Concomitant]
     Active Substance: RANOLAZINE
     Dosage: 2 DOSAGE FORMS DAILY;
     Dates: start: 20201103
  11. BISOPROLOL [Concomitant]
     Active Substance: BISOPROLOL
     Dosage: 1 DOSAGE FORMS DAILY;
     Dates: start: 20201103
  12. FINASTERIDE. [Concomitant]
     Active Substance: FINASTERIDE
     Dosage: 1 DOSAGE FORMS DAILY;
     Dates: start: 20201113
  13. RAMIPRIL. [Concomitant]
     Active Substance: RAMIPRIL
     Dosage: 1 DOSAGE FORMS DAILY;
     Dates: start: 20201103
  14. TIMODINE [Concomitant]
     Dosage: 3 DOSAGE FORMS DAILY; APPLY
     Dates: start: 20201118, end: 20201202
  15. CETIRIZINE [Concomitant]
     Active Substance: CETIRIZINE HYDROCHLORIDE
     Dosage: 1 DOSAGE FORMS DAILY;
     Dates: start: 20201103
  16. CETRABEN EMOLLIENT CREAM [Concomitant]
     Dosage: 2 DOSAGE FORMS DAILY; APPLY TWICE DAILY
     Dates: start: 20210211
  17. LACIDIPINE [Concomitant]
     Active Substance: LACIDIPINE
     Dosage: 1 DOSAGE FORMS DAILY;
     Dates: start: 20201104
  18. LOTRIDERM [Concomitant]
     Active Substance: BETAMETHASONE DIPROPIONATE\CLOTRIMAZOLE
     Dosage: 2 DOSAGE FORMS DAILY; APPLY
     Dates: start: 20210111, end: 20210125

REACTIONS (1)
  - Eczema [Unknown]
